FAERS Safety Report 5558275-1 (Version None)
Quarter: 2007Q4

REPORT INFORMATION
  Report Type: 
  Country: None (occurrence: None)
  Receive Date: 20071214
  Receipt Date: 20071212
  Transmission Date: 20080405
  Serious: Yes (Hospitalization)
  Sender: FDA-Public Use
  Company Number: DE-WYE-G00657107

PATIENT
  Sex: Female
  Weight: 55 kg

DRUGS (4)
  1. VENLAFAXINE HCL [Suspect]
     Dosage: 17 CAPSULES (OVERDOSE AMOUNT 1275MG)
     Route: 048
     Dates: start: 20071121, end: 20071121
  2. RITALIN [Suspect]
     Dosage: 20 TABLETS (OVERDOSE AMOUNT 412MG)
     Route: 048
     Dates: start: 20071121, end: 20071121
  3. ETHANOL [Suspect]
     Dosage: UNKNOWN AMOUNT
     Route: 048
     Dates: start: 20071121, end: 20071121
  4. ACETAMINOPHEN [Suspect]
     Dosage: UNKNOWN NUMBER OF TABLETS (OVERDOSE AMOUNT 6500MG)
     Route: 048
     Dates: start: 20071121, end: 20071121

REACTIONS (7)
  - AGITATION [None]
  - AREFLEXIA [None]
  - DISTURBANCE IN ATTENTION [None]
  - INTENTIONAL OVERDOSE [None]
  - MULTIPLE DRUG OVERDOSE INTENTIONAL [None]
  - STUPOR [None]
  - TACHYCARDIA [None]
